FAERS Safety Report 12397973 (Version 2)
Quarter: 2016Q3

REPORT INFORMATION
  Report Type: Spontaneous
  Country: NL (occurrence: NL)
  Receive Date: 20160524
  Receipt Date: 20160701
  Transmission Date: 20161109
  Serious: Yes (Other)
  Sender: FDA-Public Use
  Company Number: NL-WATSON-2016-10712

PATIENT
  Sex: Male

DRUGS (2)
  1. CARBOPLATIN (UNKNOWN) [Suspect]
     Active Substance: CARBOPLATIN
     Indication: CONGENITAL RETINOBLASTOMA
     Dosage: UNK, CYCLICAL
     Route: 065
  2. GENTAMICIN (UNKNOWN) [Interacting]
     Active Substance: GENTAMICIN
     Indication: SEPSIS
     Dosage: 4 MG/KG, DAILY
     Route: 042
     Dates: start: 19990318, end: 19990328

REACTIONS (2)
  - Deafness bilateral [Unknown]
  - Drug interaction [Unknown]

NARRATIVE: CASE EVENT DATE: 20060505
